FAERS Safety Report 7052830-8 (Version None)
Quarter: 2010Q4

REPORT INFORMATION
  Report Type: 
  Country: None (occurrence: None)
  Receive Date: 20101019
  Receipt Date: 20101008
  Transmission Date: 20110411
  Serious: Yes (Other)
  Sender: FDA-Public Use
  Company Number: CA-JNJFOC-20100404275

PATIENT
  Sex: Male
  Weight: 104 kg

DRUGS (5)
  1. REMICADE [Suspect]
     Indication: PSORIASIS
     Route: 042
  2. REMICADE [Suspect]
     Route: 042
  3. STELARA [Suspect]
     Indication: PSORIASIS
     Route: 058
  4. ANTIHISTAMINES [Concomitant]
  5. ACETAMINOPHEN [Concomitant]

REACTIONS (2)
  - HEPATIC LESION [None]
  - HEPATIC NEOPLASM MALIGNANT [None]
